FAERS Safety Report 24756130 (Version 5)
Quarter: 2025Q1

REPORT INFORMATION
  Report Type: Report from Study
  Country: US (occurrence: US)
  Receive Date: 20241219
  Receipt Date: 20250220
  Transmission Date: 20250408
  Serious: No
  Sender: SUNOVION
  Company Number: US-SUMITOMO PHARMA SWITZERLAND GMBH-2024SPA006069

PATIENT

DRUGS (2)
  1. ORGOVYX [Suspect]
     Active Substance: RELUGOLIX
     Indication: Prostate cancer
     Dosage: 360 MG, SINGLE
     Route: 048
     Dates: start: 20241120, end: 20241120
  2. ORGOVYX [Suspect]
     Active Substance: RELUGOLIX
     Dosage: 120 MG, QD
     Route: 048
     Dates: start: 20241121

REACTIONS (12)
  - Presyncope [Unknown]
  - Influenza [Recovering/Resolving]
  - Brain fog [Unknown]
  - Unevaluable event [Unknown]
  - Throat irritation [Unknown]
  - Hypertonic bladder [Unknown]
  - Cough [Unknown]
  - Feeling of body temperature change [Unknown]
  - Balance disorder [Unknown]
  - Dizziness [Unknown]
  - Asthenia [Unknown]
  - Myalgia [Recovered/Resolved]
